FAERS Safety Report 20859339 (Version 1)
Quarter: 2022Q2

REPORT INFORMATION
  Report Type: Spontaneous
  Country: US (occurrence: US)
  Receive Date: 20220523
  Receipt Date: 20220523
  Transmission Date: 20220721
  Serious: Yes (Other)
  Sender: FDA-Public Use
  Company Number: US-CADILA HEALTHCARE LIMITED-US-ZYDUS-078123

PATIENT

DRUGS (15)
  1. LABETALOL HYDROCHLORIDE [Suspect]
     Active Substance: LABETALOL HYDROCHLORIDE
     Indication: Product used for unknown indication
     Dosage: 400 MILLIGRAM, QD
     Route: 065
  2. LABETALOL HYDROCHLORIDE [Suspect]
     Active Substance: LABETALOL HYDROCHLORIDE
     Dosage: 200 MILLIGRAM, BID FOR 22 DAYS
     Route: 065
  3. BETAMETHASONE [Suspect]
     Active Substance: BETAMETHASONE
     Indication: Product used for unknown indication
     Dosage: UNK
     Route: 065
  4. CLOBETASOL [Suspect]
     Active Substance: CLOBETASOL
     Indication: Product used for unknown indication
     Dosage: UNK
     Route: 065
  5. METHYLPREDNISOLONE [Suspect]
     Active Substance: METHYLPREDNISOLONE
     Indication: Product used for unknown indication
     Dosage: UNK
     Route: 042
  6. NIFEDIPINE [Suspect]
     Active Substance: NIFEDIPINE
     Indication: Product used for unknown indication
     Dosage: 30 MILLIGRAM
     Route: 065
  7. INFLUENZA VIRUS VACCINE [Suspect]
     Active Substance: INFLUENZA VIRUS VACCINE
     Indication: Product used for unknown indication
     Dosage: UNK
     Route: 065
  8. FERROUS SULFATE [Suspect]
     Active Substance: FERROUS SULFATE
     Indication: Product used for unknown indication
     Dosage: 325 MILLIGRAM, BID
     Route: 065
  9. FOLIC ACID [Suspect]
     Active Substance: FOLIC ACID
     Indication: Product used for unknown indication
     Dosage: UNK, QD
     Route: 065
  10. HYDROXYPROGESTERONE [Suspect]
     Active Substance: HYDROXYPROGESTERONE
     Indication: Product used for unknown indication
     Dosage: 250 MILLIGRAM PER MILLILITRE, QD
     Route: 030
  11. MAGNESIUM [Suspect]
     Active Substance: MAGNESIUM
     Indication: Product used for unknown indication
     Dosage: UNK, FOR 24 HRS
     Route: 042
  12. PREDNISONE [Suspect]
     Active Substance: PREDNISONE
     Indication: Product used for unknown indication
     Dosage: UNK
     Route: 065
  13. TRIAMCINOLONE [Suspect]
     Active Substance: TRIAMCINOLONE
     Indication: Product used for unknown indication
     Dosage: UNK
     Route: 065
  14. HYDROCORTISONE [Suspect]
     Active Substance: HYDROCORTISONE
     Indication: Product used for unknown indication
     Dosage: UNK
     Route: 065
  15. ETANERCEPT [Suspect]
     Active Substance: ETANERCEPT
     Indication: Product used for unknown indication
     Dosage: 50 MILLIGRAM
     Route: 058

REACTIONS (2)
  - Stevens-Johnson syndrome [Unknown]
  - Maternal exposure during pregnancy [Unknown]
